FAERS Safety Report 5718020-3 (Version None)
Quarter: 2008Q2

REPORT INFORMATION
  Report Type: 
  Country: None (occurrence: None)
  Receive Date: 20080425
  Receipt Date: 20080423
  Transmission Date: 20081010
  Serious: Yes (Other)
  Sender: FDA-Public Use
  Company Number: B0518256A

PATIENT
  Age: 66 Year
  Sex: Male

DRUGS (4)
  1. CARVEDILOL [Suspect]
     Indication: CARDIAC FAILURE
     Dosage: 3.125MG TWICE PER DAY
     Route: 048
     Dates: start: 20060101
  2. LASIX [Concomitant]
  3. MICARDIS [Concomitant]
  4. REMERON [Concomitant]
     Dates: start: 20060101

REACTIONS (5)
  - AGGRESSION [None]
  - DIZZINESS [None]
  - HEADACHE [None]
  - NIGHTMARE [None]
  - VISION BLURRED [None]
